FAERS Safety Report 18476503 (Version 1)
Quarter: 2020Q4

REPORT INFORMATION
  Report Type: Spontaneous
  Country: US (occurrence: US)
  Receive Date: 20201106
  Receipt Date: 20201106
  Transmission Date: 20210114
  Serious: No
  Sender: FDA-Public Use
  Company Number: US-PERRIGO-19US012717

PATIENT
  Age: 70 Year
  Sex: Female
  Weight: 47.17 kg

DRUGS (4)
  1. CICLOPIROX. [Suspect]
     Active Substance: CICLOPIROX
     Dosage: A THIN COAT, BID
     Route: 061
     Dates: start: 20191021
  2. CICLOPIROX. [Suspect]
     Active Substance: CICLOPIROX
     Indication: NAIL INFECTION
     Dosage: 1 DROP, 2 TO 3 TIMES DAILY
     Route: 061
     Dates: start: 20191004, end: 20191020
  3. CARBIDOPA AND LEVODOPA [Concomitant]
     Active Substance: CARBIDOPA\LEVODOPA
     Indication: PARKINSON^S DISEASE
     Dosage: UNK
     Route: 065
     Dates: start: 2015
  4. SYNTHROID [Concomitant]
     Active Substance: LEVOTHYROXINE SODIUM
     Indication: THYROID CANCER
     Dosage: UNK
     Route: 065
     Dates: start: 2011

REACTIONS (2)
  - Inappropriate schedule of product administration [Unknown]
  - Nail disorder [Not Recovered/Not Resolved]

NARRATIVE: CASE EVENT DATE: 20191004
